FAERS Safety Report 22520357 (Version 4)
Quarter: 2023Q4

REPORT INFORMATION
  Report Type: Spontaneous
  Country: JP (occurrence: JP)
  Receive Date: 20230605
  Receipt Date: 20231127
  Transmission Date: 20240109
  Serious: Yes (Hospitalization)
  Sender: FDA-Public Use
  Company Number: JP-MSD-2305JPN003274J

PATIENT
  Age: 9 Decade
  Sex: Male

DRUGS (4)
  1. KEYTRUDA [Suspect]
     Active Substance: PEMBROLIZUMAB
     Indication: Renal cell carcinoma
     Dosage: 200 MILLIGRAM, Q3W
     Route: 041
     Dates: start: 20230414, end: 202304
  2. LENVATINIB MESYLATE [Suspect]
     Active Substance: LENVATINIB MESYLATE
     Indication: Renal cell carcinoma
     Dosage: 20 MILLIGRAM, QD
     Route: 048
     Dates: start: 20230414, end: 202304
  3. LENVATINIB MESYLATE [Suspect]
     Active Substance: LENVATINIB MESYLATE
     Dosage: UNK
     Route: 048
     Dates: start: 202306, end: 202306
  4. LENVATINIB MESYLATE [Suspect]
     Active Substance: LENVATINIB MESYLATE
     Dosage: UNK
     Route: 048
     Dates: start: 202306, end: 202307

REACTIONS (3)
  - Skin disorder [Recovering/Resolving]
  - Decreased appetite [Unknown]
  - Platelet count decreased [Recovered/Resolved]

NARRATIVE: CASE EVENT DATE: 20230401
